FAERS Safety Report 16274419 (Version 1)
Quarter: 2019Q2

REPORT INFORMATION
  Report Type: Spontaneous
  Country: US (occurrence: US)
  Receive Date: 20190504
  Receipt Date: 20190504
  Transmission Date: 20190711
  Serious: No
  Sender: FDA-Public Use
  Company Number: US-TEVA-2019-US-1045059

PATIENT
  Sex: Female

DRUGS (2)
  1. FLUOXETINE TEVA [Suspect]
     Active Substance: FLUOXETINE HYDROCHLORIDE
     Indication: HOT FLUSH
     Route: 065
  2. FLUOXETINE TEVA [Suspect]
     Active Substance: FLUOXETINE HYDROCHLORIDE
     Indication: PROPHYLAXIS

REACTIONS (4)
  - Product substitution issue [Unknown]
  - Feeling jittery [Unknown]
  - Dizziness [Unknown]
  - Feeling abnormal [Unknown]
